FAERS Safety Report 6535936-9 (Version None)
Quarter: 2010Q1

REPORT INFORMATION
  Report Type: 
  Country: None (occurrence: None)
  Receive Date: 20100113
  Receipt Date: 20100111
  Transmission Date: 20100710
  Serious: Yes (Hospitalization)
  Sender: FDA-Public Use
  Company Number: A0838799A

PATIENT
  Age: 57 Year
  Sex: Male
  Weight: 97.7 kg

DRUGS (1)
  1. AVANDIA [Suspect]
     Indication: DIABETES MELLITUS
     Route: 048
     Dates: start: 20011130

REACTIONS (3)
  - ASTHENIA [None]
  - DISABILITY [None]
  - MYOCARDIAL INFARCTION [None]
